FAERS Safety Report 9298605 (Version 1)
Quarter: 2013Q2

REPORT INFORMATION
  Report Type: Spontaneous
  Country: US (occurrence: US)
  Receive Date: 20130520
  Receipt Date: 20130520
  Transmission Date: 20140414
  Serious: Yes (Hospitalization)
  Sender: FDA-Public Use
  Company Number: US-ELI_LILLY_AND_COMPANY-US201305003252

PATIENT
  Sex: Female

DRUGS (3)
  1. CYMBALTA [Suspect]
     Dosage: 60 MG, UNK
     Dates: start: 201109, end: 20130124
  2. KLONOPIN [Concomitant]
     Indication: ANXIETY
     Dosage: 1 MG, UNK
     Dates: start: 2011
  3. LUNESTA [Concomitant]
     Indication: SLEEP DISORDER
     Dosage: 3 MG, UNK
     Dates: start: 2011

REACTIONS (6)
  - Autoimmune disorder [Recovered/Resolved]
  - Joint swelling [Recovered/Resolved]
  - Oedema peripheral [Recovered/Resolved]
  - Arthralgia [Recovered/Resolved]
  - Pain in extremity [Recovered/Resolved]
  - Contusion [Recovered/Resolved]
